FAERS Safety Report 8505532-2 (Version None)
Quarter: 2012Q3

REPORT INFORMATION
  Report Type: 
  Country: None (occurrence: None)
  Receive Date: 20120712
  Receipt Date: 20120702
  Transmission Date: 20120928
  Serious: Yes (Other)
  Sender: FDA-Public Use
  Company Number: US-JNJFOC-20120702669

PATIENT
  Age: 66 Year
  Sex: Male

DRUGS (1)
  1. DIPHENHYDRAMINE HCL [Suspect]
     Indication: NASAL CONGESTION
     Route: 048

REACTIONS (6)
  - DYSURIA [None]
  - RHABDOMYOLYSIS [None]
  - HYPONATRAEMIA [None]
  - POLYDIPSIA [None]
  - HYPOTENSION [None]
  - BLOOD CREATINE INCREASED [None]
